FAERS Safety Report 4903303-7 (Version None)
Quarter: 2006Q1

REPORT INFORMATION
  Report Type: 
  Country: None (occurrence: None)
  Receive Date: 20060206
  Receipt Date: 20060206
  Transmission Date: 20060701
  Serious: No
  Sender: FDA-Public Use
  Company Number: None

PATIENT
  Age: 81 Year
  Sex: Female

DRUGS (1)
  1. GAMMAGARD [Suspect]
     Dosage: IV INFUSION
     Route: 042

REACTIONS (5)
  - ASTHENIA [None]
  - CEREBROVASCULAR ACCIDENT [None]
  - FACIAL PALSY [None]
  - SPEECH DISORDER [None]
  - VISUAL DISTURBANCE [None]
